FAERS Safety Report 6409813-8 (Version None)
Quarter: 2009Q4

REPORT INFORMATION
  Report Type: 
  Country: None (occurrence: None)
  Receive Date: 20091022
  Receipt Date: 20091014
  Transmission Date: 20100525
  Serious: Yes (Other)
  Sender: FDA-Public Use
  Company Number: CH-ABBOTT-09P-151-0602665-00

PATIENT
  Age: 1 Day
  Sex: Female

DRUGS (2)
  1. DEPAKENE [Suspect]
     Indication: DRUG EXPOSURE DURING PREGNANCY
     Route: 064
  2. KEPPRA [Suspect]
     Indication: DRUG EXPOSURE DURING PREGNANCY
     Route: 064

REACTIONS (9)
  - ANAEMIA NEONATAL [None]
  - BRADYCARDIA FOETAL [None]
  - BRADYPNOEA [None]
  - DRUG EXPOSURE DURING PREGNANCY [None]
  - NEONATAL HYPOTENSION [None]
  - NEONATAL RESPIRATORY DISTRESS SYNDROME [None]
  - NEUTROPENIA NEONATAL [None]
  - PATENT DUCTUS ARTERIOSUS [None]
  - PREMATURE BABY [None]
